FAERS Safety Report 4947623-9 (Version None)
Quarter: 2006Q1

REPORT INFORMATION
  Report Type: 
  Country: None (occurrence: None)
  Receive Date: 20060320
  Receipt Date: 20060308
  Transmission Date: 20060701
  Serious: Yes (Death)
  Sender: FDA-Public Use
  Company Number: US-JNJFOC-20050404086

PATIENT
  Sex: Male

DRUGS (4)
  1. INFLIXIMAB [Suspect]
     Indication: RHEUMATOID ARTHRITIS
     Dosage: 13 DOSES
     Route: 042
  2. METHOTREXATE [Concomitant]
  3. PLAQUENIL [Concomitant]
  4. PREDNISONE [Concomitant]

REACTIONS (4)
  - DISSEMINATED TUBERCULOSIS [None]
  - LUNG ADENOCARCINOMA [None]
  - MYCOBACTERIUM FORTUITUM INFECTION [None]
  - TUBERCULOSIS [None]
